FAERS Safety Report 9964466 (Version 2)
Quarter: 2014Q1

REPORT INFORMATION
  Report Type: Spontaneous
  Country: DE (occurrence: DE)
  Receive Date: 20140305
  Receipt Date: 20140305
  Transmission Date: 20141002
  Serious: Yes (Hospitalization)
  Sender: FDA-Public Use
  Company Number: DE-009507513-1203USA00398

PATIENT
  Age: 48 Year
  Sex: Female

DRUGS (1)
  1. TAFLOTAN [Suspect]
     Indication: GLAUCOMA
     Dosage: LEFT EYE; 1 DROP (15 MCG/ML), QD
     Route: 047
     Dates: start: 20101028, end: 20110810

REACTIONS (3)
  - Motor dysfunction [Unknown]
  - Panic attack [Unknown]
  - Speech disorder [Unknown]
